FAERS Safety Report 8363567-7 (Version None)
Quarter: 2012Q1

REPORT INFORMATION
  Report Type: 
  Country: None (occurrence: None)
  Receive Date: 20120323
  Receipt Date: 20110713
  Transmission Date: 20120608
  Serious: Yes (Hospitalization)
  Sender: FDA-Public Use
  Company Number: 163-21880-11052193

PATIENT
  Age: 70 Year
  Sex: Female

DRUGS (2)
  1. REVLIMID [Suspect]
     Indication: MULTIPLE MYELOMA
     Dosage: 25 MG, DAYS 1-21 OF 28 DAYS, PO
     Route: 048
     Dates: start: 20100824, end: 20110525
  2. DEXAMETHASONE [Concomitant]

REACTIONS (2)
  - URINARY TRACT INFECTION BACTERIAL [None]
  - KLEBSIELLA INFECTION [None]
